FAERS Safety Report 19943617 (Version 56)
Quarter: 2025Q2

REPORT INFORMATION
  Report Type: Report from Study
  Country: US (occurrence: US)
  Receive Date: 20211011
  Receipt Date: 20250623
  Transmission Date: 20250717
  Serious: Yes (Hospitalization, Other)
  Sender: TAKEDA
  Company Number: US-TAKEDA-US202022876

PATIENT
  Age: 48 Year
  Sex: Female
  Weight: 63 kg

DRUGS (45)
  1. ICATIBANT [Suspect]
     Active Substance: ICATIBANT ACETATE
     Indication: Immune system disorder
  2. ICATIBANT [Suspect]
     Active Substance: ICATIBANT ACETATE
     Indication: Hereditary angioedema
  3. ICATIBANT [Suspect]
     Active Substance: ICATIBANT ACETATE
     Indication: Breast cancer female
  4. ICATIBANT [Suspect]
     Active Substance: ICATIBANT ACETATE
  5. ICATIBANT [Suspect]
     Active Substance: ICATIBANT ACETATE
  6. ICATIBANT [Suspect]
     Active Substance: ICATIBANT ACETATE
  7. TAKHZYRO [Suspect]
     Active Substance: LANADELUMAB-FLYO
     Indication: Immune system disorder
     Dosage: 300 MILLIGRAM, Q2WEEKS
  8. TAKHZYRO [Suspect]
     Active Substance: LANADELUMAB-FLYO
     Indication: Breast cancer female
     Dosage: 300 MILLIGRAM, Q2WEEKS
     Dates: start: 20190207
  9. TAKHZYRO [Suspect]
     Active Substance: LANADELUMAB-FLYO
     Dosage: 300 MILLIGRAM, 3/MONTH
     Dates: start: 20211020
  10. TAKHZYRO [Suspect]
     Active Substance: LANADELUMAB-FLYO
  11. TOBRAMYCIN [Suspect]
     Active Substance: TOBRAMYCIN
     Indication: Neoplasm malignant
  12. LETROZOLE [Suspect]
     Active Substance: LETROZOLE
     Indication: Product used for unknown indication
  13. ELIQUIS [Suspect]
     Active Substance: APIXABAN
     Indication: Product used for unknown indication
  14. BARIUM [Suspect]
     Active Substance: BARIUM
     Indication: Product used for unknown indication
  15. HEPARIN [Suspect]
     Active Substance: HEPARIN SODIUM
     Indication: Product used for unknown indication
  16. NICOTINE [Suspect]
     Active Substance: NICOTINE
     Indication: Product used for unknown indication
  17. GABAPENTIN [Suspect]
     Active Substance: GABAPENTIN
     Indication: Product used for unknown indication
  18. ENOXAPARIN [Suspect]
     Active Substance: ENOXAPARIN
     Indication: Product used for unknown indication
  19. OXYBUTYNIN CHLORIDE [Concomitant]
     Active Substance: OXYBUTYNIN CHLORIDE
  20. VALTREX [Concomitant]
     Active Substance: VALACYCLOVIR HYDROCHLORIDE
  21. PREDNISONE [Concomitant]
     Active Substance: PREDNISONE
  22. TUMS ULTRA [Concomitant]
     Active Substance: CALCIUM CARBONATE
  23. ALLEGRA ALLERGY [Concomitant]
     Active Substance: FEXOFENADINE HYDROCHLORIDE
  24. EPINEPHRINE [Concomitant]
     Active Substance: EPINEPHRINE
  25. AUGMENTIN [Concomitant]
     Active Substance: AMOXICILLIN\CLAVULANATE POTASSIUM
  26. ALBUTEROL SULFATE [Concomitant]
     Active Substance: ALBUTEROL SULFATE
  27. SUMATRIPTAN SUCCINATE [Concomitant]
     Active Substance: SUMATRIPTAN SUCCINATE
  28. BERINERT [Concomitant]
     Active Substance: HUMAN C1-ESTERASE INHIBITOR
  29. LUTEIN [Concomitant]
     Active Substance: LUTEIN
  30. CROMOLYN SODIUM [Concomitant]
     Active Substance: CROMOLYN SODIUM
  31. KALBITOR [Concomitant]
     Active Substance: ECALLANTIDE
  32. RUCONEST [Concomitant]
     Active Substance: CONESTAT ALFA
     Indication: Immune system disorder
  33. SODIUM CHLORIDE [Concomitant]
     Active Substance: SODIUM CHLORIDE
  34. STERILE WATER [Concomitant]
     Active Substance: WATER
  35. PROZAC [Concomitant]
     Active Substance: FLUOXETINE HYDROCHLORIDE
  36. HAEGARDA [Concomitant]
     Active Substance: HUMAN C1-ESTERASE INHIBITOR
  37. DIPHENHYDRAMINE [Concomitant]
     Active Substance: DIPHENHYDRAMINE
  38. SODIUM CHLORIDE [Concomitant]
     Active Substance: SODIUM CHLORIDE
  39. CEPHALEXIN [Concomitant]
     Active Substance: CEPHALEXIN
     Indication: Infection
  40. VERZENIO [Concomitant]
     Active Substance: ABEMACICLIB
  41. FLONASE [Concomitant]
     Active Substance: FLUTICASONE PROPIONATE
  42. AMOXICILLIN [Concomitant]
     Active Substance: AMOXICILLIN
  43. SULFASALAZINE [Concomitant]
     Active Substance: SULFASALAZINE
  44. SAJAZIR [Concomitant]
     Active Substance: ICATIBANT ACETATE
  45. ENOXAPARIN SODIUM [Concomitant]
     Active Substance: ENOXAPARIN SODIUM

REACTIONS (61)
  - Pulmonary thrombosis [Unknown]
  - Neoplasm malignant [Unknown]
  - Lung carcinoma cell type unspecified stage IV [Unknown]
  - Triple negative breast cancer [Unknown]
  - Breast cancer recurrent [Not Recovered/Not Resolved]
  - Neuropathy peripheral [Unknown]
  - Pneumothorax [Unknown]
  - Metastases to lung [Not Recovered/Not Resolved]
  - Breast cancer stage IV [Unknown]
  - Anaphylactic reaction [Unknown]
  - Product use issue [Unknown]
  - Inappropriate schedule of product administration [Unknown]
  - Product use in unapproved indication [Unknown]
  - Hereditary angioedema [Unknown]
  - Oral candidiasis [Unknown]
  - Respiratory tract infection [Unknown]
  - Weight decreased [Unknown]
  - Malaise [Unknown]
  - Migraine [Unknown]
  - Neuralgia [Unknown]
  - Asthenia [Unknown]
  - Insomnia [Unknown]
  - Brain fog [Unknown]
  - Stomatitis [Unknown]
  - Viral infection [Unknown]
  - Gastroenteritis viral [Unknown]
  - Cough [Unknown]
  - Upper respiratory tract infection [Unknown]
  - Viral upper respiratory tract infection [Unknown]
  - Stress [Unknown]
  - Palpitations [Unknown]
  - Nervous system disorder [Unknown]
  - Fatigue [Unknown]
  - Lung disorder [Unknown]
  - Abdominal pain upper [Unknown]
  - Paratracheal lymphadenopathy [Unknown]
  - Swelling [Unknown]
  - Insurance issue [Unknown]
  - Allergy to metals [Unknown]
  - Oral fungal infection [Unknown]
  - Confusional state [Unknown]
  - Balance disorder [Unknown]
  - Feeling abnormal [Unknown]
  - Feeling jittery [Unknown]
  - Pain [Unknown]
  - Product dose omission issue [Unknown]
  - Product dose omission in error [Unknown]
  - Drug hypersensitivity [Unknown]
  - Discomfort [Unknown]
  - Abnormal faeces [Unknown]
  - Gastrooesophageal reflux disease [Unknown]
  - Salivary hypersecretion [Unknown]
  - Dysphagia [Unknown]
  - Cystitis [Unknown]
  - Sinusitis [Recovered/Resolved]
  - Nasopharyngitis [Unknown]
  - Chest pain [Unknown]
  - Diarrhoea [Unknown]
  - Nausea [Unknown]
  - Headache [Unknown]
  - Dizziness [Unknown]

NARRATIVE: CASE EVENT DATE: 20131016
